FAERS Safety Report 8198096-7 (Version None)
Quarter: 2012Q1

REPORT INFORMATION
  Report Type: 
  Country: None (occurrence: None)
  Receive Date: 20120309
  Receipt Date: 20120207
  Transmission Date: 20120608
  Serious: No
  Sender: FDA-Public Use
  Company Number: US-AMGEN-USASP2011007197

PATIENT
  Age: 72 Year
  Sex: Female

DRUGS (9)
  1. DIOVAN HCT [Concomitant]
  2. VITAMIN B12                        /00056201/ [Concomitant]
     Dosage: UNK
  3. CALCIUM [Concomitant]
  4. PROLIA [Suspect]
     Indication: OSTEOPOROSIS POSTMENOPAUSAL
     Dosage: 60 MG, Q6MO
     Route: 058
     Dates: start: 20110120, end: 20110120
  5. TOPROL-XL [Concomitant]
  6. TOPAMAX [Concomitant]
  7. LEXAPRO [Concomitant]
  8. SYNTHROID [Concomitant]
  9. CITRACAL [Concomitant]

REACTIONS (5)
  - PAIN [None]
  - BACK PAIN [None]
  - CHEST DISCOMFORT [None]
  - ANTIBIOTIC THERAPY [None]
  - OEDEMA PERIPHERAL [None]
